FAERS Safety Report 4622864-9 (Version None)
Quarter: 2005Q1

REPORT INFORMATION
  Report Type: 
  Country: None (occurrence: None)
  Receive Date: 20050330
  Receipt Date: 20050318
  Transmission Date: 20050727
  Serious: Yes (Other)
  Sender: FDA-Public Use
  Company Number: BE-GLAXOSMITHKLINE-B0376014A

PATIENT
  Age: 55 Year
  Sex: Female

DRUGS (2)
  1. LAMICTAL [Suspect]
     Indication: BIPOLAR DISORDER
     Route: 065
  2. CARBON DIOXIDE [Concomitant]

REACTIONS (3)
  - DERMATITIS BULLOUS [None]
  - RASH MACULO-PAPULAR [None]
  - WEIGHT DECREASED [None]
